FAERS Safety Report 14516745 (Version 2)
Quarter: 2018Q1

REPORT INFORMATION
  Report Type: Report from Study
  Country: US (occurrence: US)
  Receive Date: 20180212
  Receipt Date: 20180214
  Transmission Date: 20180509
  Serious: Yes (Hospitalization)
  Sender: FDA-Public Use
  Company Number: US-ASTRAZENECA-2017SE51296

PATIENT
  Age: 801 Month
  Sex: Female
  Weight: 79.4 kg

DRUGS (3)
  1. OXYCONTIN [Concomitant]
     Active Substance: OXYCODONE HYDROCHLORIDE
  2. MOVANTIK [Suspect]
     Active Substance: NALOXEGOL OXALATE
     Indication: PAIN
     Route: 048
  3. FENTAYL [Concomitant]

REACTIONS (7)
  - Medical device site irritation [Unknown]
  - Arthropathy [Recovering/Resolving]
  - Osteoarthritis [Unknown]
  - Drug dose omission [Unknown]
  - Device failure [Recovering/Resolving]
  - Insurance issue [Unknown]
  - Abdominal pain upper [Recovered/Resolved]

NARRATIVE: CASE EVENT DATE: 201603
